FAERS Safety Report 6951540-2 (Version None)
Quarter: 2010Q3

REPORT INFORMATION
  Report Type: 
  Country: None (occurrence: None)
  Receive Date: 20100828
  Receipt Date: 20100331
  Transmission Date: 20110219
  Serious: No
  Sender: FDA-Public Use
  Company Number: US-ABBOTT-10P-163-0635651-00

PATIENT
  Sex: Female
  Weight: 63.56 kg

DRUGS (4)
  1. NIASPAN [Suspect]
     Indication: HIGH DENSITY LIPOPROTEIN DECREASED
     Dosage: AT BEDTIME
  2. NIASPAN [Suspect]
     Indication: BLOOD CHOLESTEROL ABNORMAL
  3. SYNTHROID [Concomitant]
     Indication: PRODUCT USED FOR UNKNOWN INDICATION
  4. ASPIRIN [Concomitant]
     Indication: PRODUCT USED FOR UNKNOWN INDICATION

REACTIONS (3)
  - DYSPHONIA [None]
  - GASTROOESOPHAGEAL REFLUX DISEASE [None]
  - INCREASED UPPER AIRWAY SECRETION [None]
